FAERS Safety Report 17676152 (Version 5)
Quarter: 2020Q3

REPORT INFORMATION
  Report Type: Report from Study
  Country: US (occurrence: US)
  Receive Date: 20200416
  Receipt Date: 20200819
  Transmission Date: 20201102
  Serious: Yes (Other)
  Sender: FDA-Public Use
  Company Number: US-CLOVIS ONCOLOGY-CLO-2020-000455

PATIENT
  Sex: Female

DRUGS (5)
  1. RUBRACA [Suspect]
     Active Substance: RUCAPARIB CAMSYLATE
     Indication: RETROPERITONEAL CANCER
     Dosage: 300 MG, BID
     Route: 048
     Dates: start: 20200211
  2. RUBRACA [Suspect]
     Active Substance: RUCAPARIB CAMSYLATE
     Dosage: 300 MG, BID
     Route: 048
     Dates: start: 20200212, end: 2020
  3. RUBRACA [Suspect]
     Active Substance: RUCAPARIB CAMSYLATE
     Indication: OVARIAN CANCER
     Dosage: 500 MG, BID
     Route: 048
     Dates: start: 20200211
  4. RUBRACA [Suspect]
     Active Substance: RUCAPARIB CAMSYLATE
     Indication: MALIGNANT PERITONEAL NEOPLASM
     Dosage: 500 MG, BID
     Route: 048
     Dates: start: 20200212, end: 202003
  5. RUBRACA [Suspect]
     Active Substance: RUCAPARIB CAMSYLATE
     Dosage: 300 MG, BID
     Dates: start: 202005

REACTIONS (13)
  - Nausea [Unknown]
  - Alanine aminotransferase increased [Unknown]
  - Renal impairment [Not Recovered/Not Resolved]
  - Blood creatinine increased [Unknown]
  - Aspartate aminotransferase increased [Unknown]
  - Vomiting [Recovered/Resolved]
  - Renal function test abnormal [Unknown]
  - Abdominal distension [Unknown]
  - Fatigue [Not Recovered/Not Resolved]
  - Anaemia [Not Recovered/Not Resolved]
  - Malaise [Recovering/Resolving]
  - Somnolence [Not Recovered/Not Resolved]
  - Product dose omission issue [Unknown]

NARRATIVE: CASE EVENT DATE: 2020
